FAERS Safety Report 5945472-6 (Version None)
Quarter: 2008Q4

REPORT INFORMATION
  Report Type: 
  Country: None (occurrence: None)
  Receive Date: 20081107
  Receipt Date: 20081028
  Transmission Date: 20090506
  Serious: Yes (Other)
  Sender: FDA-Public Use
  Company Number: KR-PFIZER INC-2008088812

PATIENT
  Age: 73 Year
  Sex: Male

DRUGS (5)
  1. SUTENE [Suspect]
     Indication: METASTATIC RENAL CELL CARCINOMA
     Dates: start: 20080429
  2. OPIOIDS [Concomitant]
  3. GABAPENTIN [Concomitant]
  4. TAMSULOSIN HCL [Concomitant]
  5. NSAID'S [Concomitant]

REACTIONS (1)
  - ANGIODYSPLASIA [None]
